FAERS Safety Report 16150209 (Version 1)
Quarter: 2019Q2

REPORT INFORMATION
  Report Type: Spontaneous
  Country: US (occurrence: US)
  Receive Date: 20190402
  Receipt Date: 20190402
  Transmission Date: 20190711
  Serious: Yes (Other)
  Sender: FDA-Public Use
  Company Number: None

PATIENT
  Age: 53 Year
  Sex: Female
  Weight: 92.25 kg

DRUGS (1)
  1. REPATHA [Suspect]
     Active Substance: EVOLOCUMAB
     Indication: HYPERCHOLESTEROLAEMIA
     Dosage: ?          QUANTITY:1 INJECTION(S);OTHER FREQUENCY:EVERY 2 WEEKS;OTHER ROUTE:INJECTED INTO STOMACH?
     Dates: start: 20180819, end: 20180917

REACTIONS (3)
  - Myalgia [None]
  - Muscular weakness [None]
  - Gait disturbance [None]

NARRATIVE: CASE EVENT DATE: 20180830
